FAERS Safety Report 12883177 (Version 1)
Quarter: 2016Q4

REPORT INFORMATION
  Report Type: Spontaneous
  Country: US (occurrence: US)
  Receive Date: 20161025
  Receipt Date: 20161025
  Transmission Date: 20170207
  Serious: No
  Sender: FDA-Public Use
  Company Number: US-SHIRE-US201614887

PATIENT
  Age: 50 Year
  Sex: Female

DRUGS (1)
  1. XIIDRA [Suspect]
     Active Substance: LIFITEGRAST
     Indication: DRY EYE
     Dosage: 2 GTT (1 GTT EACH EYE), 2X/DAY:BID
     Route: 047
     Dates: start: 20161007, end: 20161008

REACTIONS (5)
  - Hypersensitivity [Recovered/Resolved]
  - Eyelid rash [Recovered/Resolved]
  - Eye swelling [Recovered/Resolved]
  - Instillation site pain [Recovered/Resolved]
  - Ocular hyperaemia [Recovered/Resolved]

NARRATIVE: CASE EVENT DATE: 20161007
